FAERS Safety Report 7007379-5 (Version None)
Quarter: 2010Q3

REPORT INFORMATION
  Report Type: 
  Country: None (occurrence: None)
  Receive Date: 20100922
  Receipt Date: 20100910
  Transmission Date: 20110219
  Serious: Yes (Hospitalization, Other)
  Sender: FDA-Public Use
  Company Number: US-PFIZER INC-2010095348

PATIENT
  Sex: Male

DRUGS (14)
  1. CHANTIX [Suspect]
     Indication: SMOKING CESSATION THERAPY
     Dosage: CHANTIX STARTER PACK AND MAINTENANCE PACK
     Dates: start: 20070821, end: 20071005
  2. HYDROCODONE [Concomitant]
     Indication: PAIN
     Dosage: UNK
     Dates: start: 20030801
  3. GABAPENTIN [Concomitant]
     Indication: CONVULSION
     Dosage: UNK
     Dates: start: 20051101
  4. ALPRAZOLAM [Concomitant]
     Indication: ANXIETY
     Dosage: UNK
     Dates: start: 20031101, end: 20071001
  5. OXYCODONE [Concomitant]
     Indication: PAIN
     Dosage: UNK
     Dates: start: 20050801, end: 20071101
  6. CLONAZEPAM [Concomitant]
     Indication: CONVULSION
     Dosage: UNK
     Dates: start: 20060101
  7. AMOXICILLIN [Concomitant]
     Indication: INFECTION
     Dosage: UNK
     Dates: start: 20060201, end: 20080801
  8. DOXYCYCLINE [Concomitant]
     Indication: INFECTION
     Dosage: UNK
     Dates: start: 20060301, end: 20080701
  9. SIMVASTATIN [Concomitant]
     Indication: BLOOD CHOLESTEROL INCREASED
     Dosage: UNK
     Dates: start: 20061201
  10. CLOTRIMAZOLE [Concomitant]
     Indication: ANTIFUNGAL TREATMENT
     Dosage: UNK
     Dates: start: 20061201, end: 20080801
  11. TAMIFLU [Concomitant]
     Indication: INFLUENZA
     Dosage: UNK
     Dates: start: 20070201, end: 20080301
  12. ZETIA [Concomitant]
     Indication: BLOOD CHOLESTEROL INCREASED
     Dosage: UNK
     Dates: start: 20070401
  13. TRIAMTERENE AND HYDROCHLOROTHIAZIDE [Concomitant]
     Indication: HYPERTENSION
     Dosage: UNK
     Dates: start: 20070601
  14. LONOX [Concomitant]
     Indication: DIARRHOEA
     Dosage: UNK
     Dates: start: 20070101, end: 20080201

REACTIONS (7)
  - AFFECTIVE DISORDER [None]
  - AGGRESSION [None]
  - ANXIETY [None]
  - BIPOLAR DISORDER [None]
  - CONVULSION [None]
  - DEPRESSION [None]
  - SUICIDAL IDEATION [None]
